FAERS Safety Report 8397559-9 (Version None)
Quarter: 2012Q2

REPORT INFORMATION
  Report Type: 
  Country: None (occurrence: None)
  Receive Date: 20120531
  Receipt Date: 20120523
  Transmission Date: 20120825
  Serious: Yes (Hospitalization)
  Sender: FDA-Public Use
  Company Number: US-BAYER-2012-018498

PATIENT
  Age: 27 Year
  Sex: Female
  Weight: 79 kg

DRUGS (6)
  1. ALBUTEROL [Concomitant]
     Dosage: UNK
     Dates: start: 19950101
  2. ALLEGRA [Concomitant]
  3. SYNTHROID [Concomitant]
     Indication: HYPOTHYROIDISM
     Dosage: UNK
     Dates: start: 20040101
  4. YASMIN [Suspect]
     Indication: CONTRACEPTION
     Dosage: UNK
     Dates: start: 20030501, end: 20060101
  5. LEVAQUIN [Concomitant]
  6. SINGULAIR [Concomitant]

REACTIONS (8)
  - NAUSEA [None]
  - ANXIETY [None]
  - PULMONARY EMBOLISM [None]
  - VOMITING [None]
  - DEEP VEIN THROMBOSIS [None]
  - PROCEDURAL PAIN [None]
  - GALLBLADDER DISORDER [None]
  - PAIN [None]
